FAERS Safety Report 5750246-5 (Version None)
Quarter: 2008Q2

REPORT INFORMATION
  Report Type: 
  Country: None (occurrence: None)
  Receive Date: 20080523
  Receipt Date: 20080523
  Transmission Date: 20081010
  Serious: Yes (Life-Threatening, Hospitalization, Other)
  Sender: FDA-Public Use
  Company Number: None

PATIENT
  Sex: Female
  Weight: 74.8435 kg

DRUGS (1)
  1. DIGITEK [Suspect]
     Indication: ATRIAL FIBRILLATION
     Dosage: 0.125 MG 1 X DAILY MOUTH
     Route: 048
     Dates: start: 20080314, end: 20080425

REACTIONS (1)
  - HERPES ZOSTER [None]
